FAERS Safety Report 5740482-6 (Version None)
Quarter: 2008Q2

REPORT INFORMATION
  Report Type: 
  Country: None (occurrence: None)
  Receive Date: 20080516
  Receipt Date: 20080307
  Transmission Date: 20081010
  Serious: Yes (Death, Other)
  Sender: FDA-Public Use
  Company Number: US-BAYER-200815870GPV

PATIENT

DRUGS (4)
  1. FLUDARABINE [Suspect]
     Indication: MULTIPLE MYELOMA
     Route: 042
  2. BUSULFAN [Suspect]
     Indication: MULTIPLE MYELOMA
     Route: 042
  3. ANTI THYMOCYTE GLOBULIN [Suspect]
     Indication: MULTIPLE MYELOMA
     Route: 065
  4. TACROLIMUS [Concomitant]
     Indication: PROPHYLAXIS AGAINST GRAFT VERSUS HOST DISEASE
     Route: 065

REACTIONS (5)
  - ACUTE GRAFT VERSUS HOST DISEASE [None]
  - CHRONIC GRAFT VERSUS HOST DISEASE [None]
  - DISEASE PROGRESSION [None]
  - NEUROTOXICITY [None]
  - THERAPEUTIC AGENT TOXICITY [None]
